FAERS Safety Report 5366715-6 (Version None)
Quarter: 2007Q2

REPORT INFORMATION
  Report Type: 
  Country: None (occurrence: None)
  Receive Date: 20070622
  Receipt Date: 20060328
  Transmission Date: 20071010
  Serious: No
  Sender: FDA-Public Use
  Company Number: US-ASTRAZENECA-2006UW05410

PATIENT
  Age: 49 Year
  Sex: Female
  Weight: 80.3 kg

DRUGS (3)
  1. RHINOCORT [Suspect]
     Indication: HYPERSENSITIVITY
     Dosage: EACH NOSTRIL
     Route: 045
     Dates: start: 20060326
  2. ADVAIR DISKUS 100/50 [Concomitant]
  3. ALLEGRA [Concomitant]

REACTIONS (4)
  - CHILLS [None]
  - MALAISE [None]
  - NAUSEA [None]
  - VERTIGO [None]
